FAERS Safety Report 5614020-2 (Version None)
Quarter: 2008Q1

REPORT INFORMATION
  Report Type: 
  Country: None (occurrence: None)
  Receive Date: 20080205
  Receipt Date: 20080128
  Transmission Date: 20080703
  Serious: Yes (Death, Hospitalization)
  Sender: FDA-Public Use
  Company Number: GB-AVENTIS-200811003GDDC

PATIENT
  Age: 55 Year
  Sex: Male
  Weight: 74 kg

DRUGS (4)
  1. DOCETAXEL [Suspect]
     Indication: PROSTATE CANCER
     Dosage: DOSE: UNK
     Route: 042
     Dates: start: 20070711, end: 20070918
  2. PREDNISOLONE [Suspect]
     Indication: PROSTATE CANCER
     Dosage: DOSE: UNK
     Dates: start: 20070711, end: 20070918
  3. ZOLEDRONIC ACID [Suspect]
     Indication: PROSTATE CANCER
     Dosage: DOSE: UNK
     Dates: start: 20070711, end: 20071005
  4. STRONTIUM CHLORIDE SR-89 [Suspect]
     Indication: PROSTATE CANCER
     Dosage: DOSE: UNK

REACTIONS (3)
  - EMBOLISM [None]
  - LOWER RESPIRATORY TRACT INFECTION [None]
  - THROMBOSIS [None]
